FAERS Safety Report 7393286-5 (Version None)
Quarter: 2011Q2

REPORT INFORMATION
  Report Type: 
  Country: None (occurrence: None)
  Receive Date: 20110405
  Receipt Date: 20100217
  Transmission Date: 20111010
  Serious: No
  Sender: FDA-Public Use
  Company Number: 2010BI005601

PATIENT
  Age: 35 Year
  Sex: Male

DRUGS (1)
  1. TYSABRI [Suspect]
     Indication: MULTIPLE SCLEROSIS
     Route: 042
     Dates: start: 20091002

REACTIONS (7)
  - MEMORY IMPAIRMENT [None]
  - FATIGUE [None]
  - LOSS OF CONSCIOUSNESS [None]
  - SUDDEN ONSET OF SLEEP [None]
  - HEADACHE [None]
  - MULTIPLE SCLEROSIS RELAPSE [None]
  - DIZZINESS [None]
